FAERS Safety Report 7369790-2 (Version None)
Quarter: 2011Q1

REPORT INFORMATION
  Report Type: 
  Country: None (occurrence: None)
  Receive Date: 20110323
  Receipt Date: 20110321
  Transmission Date: 20110831
  Serious: Yes (Other)
  Sender: FDA-Public Use
  Company Number: US-PFIZER INC-2010147126

PATIENT
  Sex: Female

DRUGS (4)
  1. CHANTIX [Suspect]
     Indication: SMOKING CESSATION THERAPY
     Dosage: 0.5 MG, 1X/DAY
     Dates: start: 20090901, end: 20101104
  2. LORAZEPAM [Concomitant]
     Indication: SLEEP DISORDER
     Dosage: 5 MG, 1X/DAY
     Route: 048
     Dates: start: 20100601
  3. METFORMIN [Concomitant]
     Indication: DIABETES MELLITUS
     Dosage: 500 MG, 1X/DAY
     Route: 048
     Dates: start: 20090601
  4. VICODIN [Concomitant]
     Indication: INTERVERTEBRAL DISC DEGENERATION
     Dosage: UNK

REACTIONS (7)
  - PARANOIA [None]
  - HYPERVENTILATION [None]
  - PALPITATIONS [None]
  - SUICIDAL IDEATION [None]
  - DEPRESSION [None]
  - AGITATION [None]
  - HALLUCINATION, AUDITORY [None]
